FAERS Safety Report 5135281-2 (Version None)
Quarter: 2006Q4

REPORT INFORMATION
  Report Type: 
  Country: None (occurrence: None)
  Receive Date: 20061024
  Receipt Date: 20061024
  Transmission Date: 20070319
  Serious: Yes (Hospitalization)
  Sender: FDA-Public Use
  Company Number: None

PATIENT
  Sex: Male

DRUGS (27)
  1. METOCLOPRAMIDE [Suspect]
     Indication: GASTROINTESTINAL MOTILITY DISORDER
     Dosage: 10 MG  TID   PO
     Route: 048
     Dates: start: 20060809, end: 20060830
  2. ASPIRIN [Concomitant]
  3. CALCIUM GLUCONATE [Concomitant]
  4. CIPROFLOXACIN HCL [Concomitant]
  5. CITALOPRAM [Concomitant]
  6. CLONIDINE [Concomitant]
  7. COMBIVENT [Concomitant]
  8. CYCLOSPORINE OPHTHALMIC [Concomitant]
  9. DILTIAZEM HCL [Concomitant]
  10. DOCUSATE [Concomitant]
  11. DONEPEZIL HCL [Concomitant]
  12. FERROUS SULFATE TAB [Concomitant]
  13. FLUNISOLIDE [Concomitant]
  14. HYDROCODONE BITARTRATE + ACETAMINOPHEN [Concomitant]
  15. LACTULOSE [Concomitant]
  16. LEVALBUTEROL HCL [Concomitant]
  17. LORATADINE [Concomitant]
  18. MILK OF MAGNESIA TAB [Concomitant]
  19. NYSTATIN [Concomitant]
  20. OMEPRAZOLE [Concomitant]
  21. POLYETHYLENE GLYCOL 3350 [Concomitant]
  22. SENNA [Concomitant]
  23. SIMETHICONE [Concomitant]
  24. SIMVASTATIN [Concomitant]
  25. TOLTERODINE [Concomitant]
  26. TRAZODONE HCL [Concomitant]
  27. WARFARIN SODIUM [Concomitant]

REACTIONS (3)
  - ASTHENIA [None]
  - FALL [None]
  - TREMOR [None]
